FAERS Safety Report 13401185 (Version 3)
Quarter: 2017Q2

REPORT INFORMATION
  Report Type: Spontaneous
  Country: ES (occurrence: ES)
  Receive Date: 20170404
  Receipt Date: 20170522
  Transmission Date: 20170830
  Serious: Yes (Hospitalization, Other)
  Sender: FDA-Public Use
  Company Number: ES-SA-2017SA052744

PATIENT
  Age: 40 Year
  Sex: Female
  Weight: 50 kg

DRUGS (1)
  1. LEMTRADA [Suspect]
     Active Substance: ALEMTUZUMAB
     Indication: MULTIPLE SCLEROSIS
     Route: 041
     Dates: start: 20161107, end: 20161111

REACTIONS (6)
  - Gaze palsy [Recovering/Resolving]
  - Eyelid oedema [Unknown]
  - Dacryostenosis acquired [Unknown]
  - Eye pain [Recovering/Resolving]
  - Ophthalmoplegia [Recovering/Resolving]
  - Dacryoadenitis acquired [Unknown]

NARRATIVE: CASE EVENT DATE: 201703
